FAERS Safety Report 8247621-6 (Version None)
Quarter: 2012Q1

REPORT INFORMATION
  Report Type: 
  Country: None (occurrence: None)
  Receive Date: 20120330
  Receipt Date: 20120328
  Transmission Date: 20120608
  Serious: Yes (Hospitalization)
  Sender: FDA-Public Use
  Company Number: ES-PFIZER INC-2012079027

PATIENT
  Age: 78 Year
  Sex: Male

DRUGS (6)
  1. FUROSEMIDE [Interacting]
     Dosage: 40 MG, 1X/DAY
     Route: 048
     Dates: start: 20090108
  2. MINITRAN [Interacting]
     Indication: MYOCARDIAL ISCHAEMIA
     Dosage: 15 MG/24H, UNK
     Route: 062
     Dates: start: 19990101, end: 20091208
  3. CARVEDILOL [Interacting]
     Dosage: 25 MG, 1X/DAY
     Route: 048
     Dates: start: 20090826
  4. ENALAPRIL MALEATE [Interacting]
     Indication: HYPERTENSION
     Dosage: 5 MG, 1X/DAY
     Route: 048
     Dates: start: 20080414, end: 20091208
  5. ASPIRIN [Interacting]
     Indication: PROPHYLAXIS
     Dosage: 300 MG, 1X/DAY
     Route: 048
     Dates: start: 19990101, end: 20091208
  6. ALDACTONE [Suspect]
     Dosage: 25 MG, 1X/DAY
     Route: 048
     Dates: start: 20090114, end: 20091208

REACTIONS (3)
  - RENAL FAILURE ACUTE [None]
  - HYPERKALAEMIA [None]
  - DRUG INTERACTION [None]
